FAERS Safety Report 7070263-5 (Version None)
Quarter: 2010Q4

REPORT INFORMATION
  Report Type: 
  Country: None (occurrence: None)
  Receive Date: 20101028
  Receipt Date: 20101008
  Transmission Date: 20110411
  Serious: No
  Sender: FDA-Public Use
  Company Number: US-WYE-H18097410

PATIENT
  Sex: Female

DRUGS (1)
  1. EFFEXOR [Suspect]
     Dosage: UNSPECIFIED
     Dates: start: 20100901, end: 20101001

REACTIONS (7)
  - COORDINATION ABNORMAL [None]
  - HEADACHE [None]
  - NECK PAIN [None]
  - NERVOUSNESS [None]
  - TREMOR [None]
  - UNEVALUABLE EVENT [None]
  - VISUAL ACUITY REDUCED [None]
